FAERS Safety Report 20151764 (Version 1)
Quarter: 2021Q4

REPORT INFORMATION
  Report Type: Spontaneous
  Country: PT (occurrence: PT)
  Receive Date: 20211206
  Receipt Date: 20211206
  Transmission Date: 20220303
  Serious: Yes (Other)
  Sender: FDA-Public Use
  Company Number: PT-PFIZER INC-202101644461

PATIENT
  Age: 48 Year
  Sex: Female

DRUGS (2)
  1. DOXYCYCLINE [Suspect]
     Active Substance: DOXYCYCLINE
     Indication: Staphylococcal infection
     Dosage: UNK
  2. ACITRETIN [Concomitant]
     Active Substance: ACITRETIN
     Indication: Keratosis follicular
     Dosage: 10 MG, DAILY

REACTIONS (2)
  - Toxic skin eruption [Recovered/Resolved]
  - Off label use [Unknown]
